FAERS Safety Report 6934912-1 (Version None)
Quarter: 2010Q3

REPORT INFORMATION
  Report Type: 
  Country: None (occurrence: None)
  Receive Date: 20100821
  Receipt Date: 20100809
  Transmission Date: 20110219
  Serious: Yes (Hospitalization)
  Sender: FDA-Public Use
  Company Number: CHNY2010AU00485

PATIENT
  Age: 26 Year
  Sex: Male

DRUGS (1)
  1. IBUPROFEN (NGX) [Suspect]
     Indication: BACK PAIN
     Dosage: UNK

REACTIONS (12)
  - DEHYDRATION [None]
  - DUODENAL STENOSIS [None]
  - DUODENAL ULCER [None]
  - FOOD INTOLERANCE [None]
  - GASTRIC DILATATION [None]
  - HYPOVOLAEMIA [None]
  - IRON DEFICIENCY ANAEMIA [None]
  - MALNUTRITION [None]
  - NAUSEA [None]
  - STOMACH DILATION PROCEDURE [None]
  - VOMITING [None]
  - WEIGHT DECREASED [None]
